FAERS Safety Report 10251144 (Version 1)
Quarter: 2014Q2

REPORT INFORMATION
  Report Type: Spontaneous
  Country: FR (occurrence: FR)
  Receive Date: 20140620
  Receipt Date: 20140620
  Transmission Date: 20141212
  Serious: Yes (Hospitalization)
  Sender: FDA-Public Use
  Company Number: FR-PFIZER INC-2014166330

PATIENT
  Age: 12 Year
  Sex: Female
  Weight: 54 kg

DRUGS (4)
  1. SOLU-MEDROL [Suspect]
     Route: 042
  2. SALBUTAMOL [Suspect]
     Dosage: 5 MG, SINGLE
     Route: 042
     Dates: start: 20140429, end: 20140429
  3. NOVORAPID [Concomitant]
     Indication: TYPE 1 DIABETES MELLITUS
  4. LANTUS [Concomitant]
     Indication: TYPE 1 DIABETES MELLITUS

REACTIONS (5)
  - Medication error [Recovered/Resolved]
  - Wrong drug administered [Recovered/Resolved]
  - Chest pain [Recovered/Resolved]
  - Feeling hot [Recovered/Resolved]
  - Hypokalaemia [Recovered/Resolved]
